FAERS Safety Report 15043523 (Version 1)
Quarter: 2018Q2

REPORT INFORMATION
  Report Type: Spontaneous
  Country: US (occurrence: US)
  Receive Date: 20180531
  Receipt Date: 20180531
  Transmission Date: 20180711
  Serious: Yes (Disabling, Other)
  Sender: FDA-Public Use
  Company Number: None

PATIENT
  Age: 55 Year
  Sex: Female
  Weight: 59.87 kg

DRUGS (25)
  1. LASIX [Concomitant]
     Active Substance: FUROSEMIDE
  2. GUAIFENESIN. [Concomitant]
     Active Substance: GUAIFENESIN
  3. AZITHROMYCIN ANHYDROUS. [Concomitant]
     Active Substance: AZITHROMYCIN ANHYDROUS
  4. PREDNISONE. [Concomitant]
     Active Substance: PREDNISONE
  5. DUONEB [Concomitant]
     Active Substance: ALBUTEROL SULFATE\IPRATROPIUM BROMIDE
  6. SPIRIVA [Concomitant]
     Active Substance: TIOTROPIUM BROMIDE MONOHYDRATE
  7. FLONASE [Concomitant]
     Active Substance: FLUTICASONE PROPIONATE
  8. TYLENOL CAPLETS [Concomitant]
  9. GABAPENTIN. [Concomitant]
     Active Substance: GABAPENTIN
  10. THEOPHYLLINE ER [Concomitant]
     Active Substance: THEOPHYLLINE ANHYDROUS
  11. MAGNESIUM OXIDE. [Concomitant]
     Active Substance: MAGNESIUM OXIDE
  12. VITAMIN D2 [Concomitant]
     Active Substance: ERGOCALCIFEROL
  13. VENOFER [Suspect]
     Active Substance: IRON SUCROSE
     Indication: IRON DEFICIENCY ANAEMIA
     Dosage: ?          QUANTITY:300 MG MILLIGRAM(S);?
     Route: 042
     Dates: start: 20180416, end: 20180416
  14. OMEPRAZOLE. [Concomitant]
     Active Substance: OMEPRAZOLE
  15. ROPINIROLE HCL [Concomitant]
     Active Substance: ROPINIROLE HYDROCHLORIDE
  16. MIRTAZAPINE. [Concomitant]
     Active Substance: MIRTAZAPINE
  17. ADVAIR DISKUS [Concomitant]
     Active Substance: FLUTICASONE PROPIONATE\SALMETEROL XINAFOATE
  18. HOME OXYGEN [Concomitant]
  19. LISINOPRIL. [Concomitant]
     Active Substance: LISINOPRIL
  20. TOPROL XL [Concomitant]
     Active Substance: METOPROLOL SUCCINATE
  21. TIZANIDINE HCL [Concomitant]
     Active Substance: TIZANIDINE HYDROCHLORIDE
  22. CARBAMAZEPINE. [Concomitant]
     Active Substance: CARBAMAZEPINE
  23. HYDROXYZINE HCL [Concomitant]
     Active Substance: HYDROXYZINE HYDROCHLORIDE
  24. VENOFER [Suspect]
     Active Substance: IRON SUCROSE
     Indication: ANAEMIA OF CHRONIC DISEASE
     Dosage: ?          QUANTITY:300 MG MILLIGRAM(S);?
     Route: 042
     Dates: start: 20180416, end: 20180416
  25. CALCIUM [Concomitant]
     Active Substance: CALCIUM

REACTIONS (7)
  - Skin discolouration [None]
  - Oedema peripheral [None]
  - Hypertension [None]
  - Pain in extremity [None]
  - Chronic kidney disease [None]
  - Peripheral coldness [None]
  - Erythema [None]

NARRATIVE: CASE EVENT DATE: 20180416
